FAERS Safety Report 6429636-3 (Version None)
Quarter: 2009Q4

REPORT INFORMATION
  Report Type: 
  Country: None (occurrence: None)
  Receive Date: 20091105
  Receipt Date: 20091027
  Transmission Date: 20100525
  Serious: Yes (Other)
  Sender: FDA-Public Use
  Company Number: US-JNJCH-2009024861

PATIENT
  Age: 76 Year
  Sex: Female
  Weight: 65.8 kg

DRUGS (1)
  1. COOL MINT LISTERINE [Suspect]
     Indication: DENTAL DISORDER PROPHYLAXIS
     Dosage: TEXT:AS DIRECTED TWICE
     Route: 048

REACTIONS (3)
  - APPLICATION SITE BURN [None]
  - PRODUCT QUALITY ISSUE [None]
  - TOOTH DISORDER [None]
